FAERS Safety Report 5127736-1 (Version None)
Quarter: 2006Q4

REPORT INFORMATION
  Report Type: 
  Country: None (occurrence: None)
  Receive Date: 20061016
  Receipt Date: 20061012
  Transmission Date: 20070319
  Serious: Yes (Disabling)
  Sender: FDA-Public Use
  Company Number: GB-GLAXOSMITHKLINE-B0442086A

PATIENT
  Age: 49 Year
  Sex: Male
  Weight: 59 kg

DRUGS (2)
  1. BUPROPION HCL [Suspect]
     Indication: SMOKING CESSATION THERAPY
     Dosage: 300MG UNKNOWN
     Route: 048
     Dates: start: 20060728, end: 20060811
  2. SILDENAFIL [Concomitant]
     Indication: ERECTILE DYSFUNCTION
     Dosage: 100MG UNKNOWN
     Route: 048
     Dates: start: 20060301

REACTIONS (3)
  - ARTHRALGIA [None]
  - MALAISE [None]
  - RASH [None]
